FAERS Safety Report 8574296-9 (Version None)
Quarter: 2012Q3

REPORT INFORMATION
  Report Type: 
  Country: None (occurrence: None)
  Receive Date: 20120806
  Receipt Date: 20120730
  Transmission Date: 20120928
  Serious: Yes (Hospitalization, Other)
  Sender: FDA-Public Use
  Company Number: US-ABBOTT-12P-163-0944096-00

PATIENT
  Age: 45 Year
  Sex: Female
  Weight: 73.548 kg

DRUGS (1)
  1. HUMIRA [Suspect]
     Indication: CROHN'S DISEASE
     Dates: start: 20110101

REACTIONS (8)
  - INTESTINAL STENOSIS [None]
  - POSTOPERATIVE ADHESION [None]
  - VOMITING [None]
  - SMALL INTESTINAL OBSTRUCTION [None]
  - NAUSEA [None]
  - ABDOMINAL PAIN [None]
  - STAPHYLOCOCCAL INFECTION [None]
  - HERNIA [None]
